FAERS Safety Report 17888959 (Version 2)
Quarter: 2020Q2

REPORT INFORMATION
  Report Type: Spontaneous
  Country: US (occurrence: US)
  Receive Date: 20200612
  Receipt Date: 20200616
  Transmission Date: 20200714
  Serious: No
  Sender: FDA-Public Use
  Company Number: US-SA-2020SA149000

PATIENT

DRUGS (2)
  1. TOUJEO MAX [Suspect]
     Active Substance: INSULIN GLARGINE
     Indication: TYPE 2 DIABETES MELLITUS
     Dosage: 16 IU, QD
  2. TOUJEO MAX [Suspect]
     Active Substance: INSULIN GLARGINE
     Dosage: 8 IU

REACTIONS (4)
  - Product dose omission [Unknown]
  - Incorrect dose administered by device [Unknown]
  - Device issue [Unknown]
  - Blood glucose increased [Unknown]
